FAERS Safety Report 12219336 (Version 2)
Quarter: 2016Q2

REPORT INFORMATION
  Report Type: Report from Study
  Country: US (occurrence: US)
  Receive Date: 20160329
  Receipt Date: 20160406
  Transmission Date: 20160815
  Serious: Yes (Hospitalization)
  Sender: FDA-Public Use
  Company Number: US-BIOGEN-2016BI00209800

PATIENT
  Age: 59 Year
  Sex: Female

DRUGS (1)
  1. TYSABRI [Suspect]
     Active Substance: NATALIZUMAB
     Indication: MULTIPLE SCLEROSIS
     Route: 042
     Dates: start: 20150921

REACTIONS (4)
  - Decreased immune responsiveness [Recovered/Resolved]
  - Clostridium difficile colitis [Recovered/Resolved]
  - Constipation [Recovered/Resolved]
  - Drug dose omission [Recovered/Resolved]

NARRATIVE: CASE EVENT DATE: 201602
